FAERS Safety Report 20087194 (Version 2)
Quarter: 2021Q4

REPORT INFORMATION
  Report Type: Spontaneous
  Country: US (occurrence: US)
  Receive Date: 20211118
  Receipt Date: 20211213
  Transmission Date: 20220303
  Serious: No
  Sender: FDA-Public Use
  Company Number: US-GLAXOSMITHKLINE-US2021AMR233535

PATIENT
  Age: 53 Year
  Sex: Female

DRUGS (2)
  1. NUCALA [Suspect]
     Active Substance: MEPOLIZUMAB
     Indication: Asthma
     Dosage: UNK
  2. DUPIXENT [Suspect]
     Active Substance: DUPILUMAB
     Indication: Eczema
     Dosage: 300 MG (STRENGTH: 150 MG/ML)
     Route: 058
     Dates: start: 2021

REACTIONS (10)
  - Pain [Unknown]
  - Peripheral swelling [Unknown]
  - Erythema [Unknown]
  - Skin warm [Unknown]
  - Muscle tightness [Unknown]
  - Skin infection [Unknown]
  - Middle insomnia [Unknown]
  - Skin mass [Unknown]
  - Skin induration [Unknown]
  - Pain of skin [Unknown]

NARRATIVE: CASE EVENT DATE: 20211106
